FAERS Safety Report 5392884-8 (Version None)
Quarter: 2007Q3

REPORT INFORMATION
  Report Type: 
  Country: None (occurrence: None)
  Receive Date: 20070721
  Receipt Date: 20070712
  Transmission Date: 20080115
  Serious: Yes (Hospitalization, Other)
  Sender: FDA-Public Use
  Company Number: PFIZER INC-2007057684

PATIENT
  Sex: Male
  Weight: 79.4 kg

DRUGS (2)
  1. CELEBREX [Suspect]
     Indication: JOINT INJURY
  2. BEXTRA [Suspect]
     Indication: JOINT INJURY

REACTIONS (1)
  - THROMBOSIS [None]
